FAERS Safety Report 4317155-X (Version None)
Quarter: 2004Q1

REPORT INFORMATION
  Report Type: 
  Country: None (occurrence: None)
  Receive Date: 20040312
  Receipt Date: 20040304
  Transmission Date: 20041129
  Serious: Yes (Hospitalization, Other)
  Sender: FDA-Public Use
  Company Number: DE-JNJFOC-20030603419

PATIENT
  Age: 14 Year
  Sex: Male
  Weight: 37.8 kg

DRUGS (2)
  1. CONCERTA [Suspect]
     Indication: ATTENTION DEFICIT/HYPERACTIVITY DISORDER
     Dosage: 1 TABLET DAILY
     Dates: start: 20030301, end: 20030611
  2. MEDIKNET (METHYLPHENIDATE HYDROCHLORIDE) TABLET [Concomitant]

REACTIONS (6)
  - FALL [None]
  - HAEMATOMA [None]
  - IRON DEFICIENCY [None]
  - PETECHIAE [None]
  - SKIN BLEEDING [None]
  - THROMBOCYTOPENIA [None]
